FAERS Safety Report 5677895-7 (Version None)
Quarter: 2008Q1

REPORT INFORMATION
  Report Type: 
  Country: None (occurrence: None)
  Receive Date: 20080319
  Receipt Date: 20080306
  Transmission Date: 20080703
  Serious: Yes (Other)
  Sender: FDA-Public Use
  Company Number: 231388J07USA

PATIENT
  Age: 50 Year
  Sex: Female
  Weight: 70.3075 kg

DRUGS (6)
  1. REBIF [Suspect]
     Indication: MULTIPLE SCLEROSIS
     Dosage: 44 MCG, 3 IN 1 WEEKS, SUBCUTANEOUS
     Route: 058
     Dates: start: 20070730
  2. KLONOPIN [Concomitant]
  3. PRIMIDONE [Concomitant]
  4. SERTRALINE [Concomitant]
  5. FLEXERIL [Concomitant]
  6. BACLOFEN [Concomitant]

REACTIONS (1)
  - PARKINSON'S DISEASE [None]
